FAERS Safety Report 6138785-9 (Version None)
Quarter: 2009Q1

REPORT INFORMATION
  Report Type: 
  Country: None (occurrence: None)
  Receive Date: 20090327
  Receipt Date: 20090312
  Transmission Date: 20090719
  Serious: Yes (Hospitalization)
  Sender: FDA-Public Use
  Company Number: PVS2-12-MAR-2009

PATIENT
  Age: 30 Year
  Sex: Male

DRUGS (1)
  1. SEROMYCIN [Suspect]
     Indication: TUBERCULOSIS
     Dosage: 750 MG, ORAL
     Route: 048
     Dates: start: 20061111, end: 20080408

REACTIONS (1)
  - AMNESIA [None]
